FAERS Safety Report 9890910 (Version 2)
Quarter: 2014Q1

REPORT INFORMATION
  Report Type: Spontaneous
  Country: US (occurrence: None)
  Receive Date: 20140210
  Receipt Date: 20140224
  Transmission Date: 20141002
  Serious: Yes (Other)
  Sender: FDA-Public Use
  Company Number: 2014010139

PATIENT
  Age: 85 Year
  Sex: Male

DRUGS (13)
  1. TOREM [Suspect]
     Indication: HYPERTENSION
     Dosage: 0.5 IN THE MORNING OF TOREM; DAY 2 OF HOSPITAL STAY - ?DAY 3 OF HOSPITAL STAY
  2. TOREM [Suspect]
     Indication: HYPERTENSION
     Dosage: 0.5 IN THE MORNING OF TOREM; DAY 2 OF HOSPITAL STAY - ?DAY 3 OF HOSPITAL STAY
  3. TORASEMIDE [Suspect]
     Indication: HYPERTENSION
     Dosage: 0.5 DOSAGE FORMS (0.5 DOSAGE FORMS, 1 IN 1 D)
     Route: 048
     Dates: start: 20130322
  4. ATORVASTATIN [Concomitant]
  5. LOGIMAX [Concomitant]
  6. LYRICA [Concomitant]
  7. TOLVON [Concomitant]
  8. VALORON [Concomitant]
  9. PANTOPRAZOLE [Concomitant]
  10. BETASERC [Concomitant]
  11. DAFALGAN [Concomitant]
  12. SERESTA [Concomitant]
  13. LAXOBERON [Concomitant]

REACTIONS (7)
  - Hypokalaemia [None]
  - Condition aggravated [None]
  - Prerenal failure [None]
  - Drug dispensing error [None]
  - Blood creatinine increased [None]
  - Weight decreased [None]
  - Incorrect dose administered [None]
